FAERS Safety Report 7468596-3 (Version None)
Quarter: 2011Q2

REPORT INFORMATION
  Report Type: 
  Country: None (occurrence: None)
  Receive Date: 20110509
  Receipt Date: 20110427
  Transmission Date: 20111010
  Serious: Yes (Hospitalization)
  Sender: FDA-Public Use
  Company Number: US-BAYER-2011-017239

PATIENT
  Age: 81 Year
  Sex: Female
  Weight: 55.782 kg

DRUGS (12)
  1. ASPIRIN [Concomitant]
     Dosage: 81 MG, OM
  2. TRAMADOL HYDROCHLORIDE [Concomitant]
     Dosage: 50 MG, BID
  3. UNCODEABLE ^UNCLASSIFIABLE^ [Concomitant]
  4. AVELOX [Suspect]
     Indication: BRONCHITIS
     Dosage: 400 MG, QD
     Route: 048
     Dates: start: 20110209, end: 20110214
  5. OSCAL 500-D [CALCIUM,COLECALCIFEROL] [Concomitant]
     Dosage: UNK UNK, BID
  6. SIMVASTATIN [Concomitant]
     Dosage: 10 MG, HS
  7. PLAVIX [Concomitant]
     Dosage: 45 MG, UNK
     Dates: start: 20060401
  8. COUMADIN [Concomitant]
  9. ZETIA [Concomitant]
     Dosage: 10 MG, HS
  10. PINDOLOL [Concomitant]
     Dosage: 2.5 MG, BID
  11. FOSAMAX [Concomitant]
     Dosage: 70 MG, OW
  12. MECLIZINE [Concomitant]
     Indication: VERTIGO
     Dosage: UNK UNK, PRN

REACTIONS (4)
  - CEREBROVASCULAR ACCIDENT [None]
  - BLOOD URINE PRESENT [None]
  - PROTHROMBIN TIME PROLONGED [None]
  - HAEMATOCHEZIA [None]
